FAERS Safety Report 11781833 (Version 2)
Quarter: 2015Q4

REPORT INFORMATION
  Report Type: Spontaneous
  Country: US (occurrence: US)
  Receive Date: 20151126
  Receipt Date: 20151221
  Transmission Date: 20160305
  Serious: Yes (Death, Hospitalization, Other)
  Sender: FDA-Public Use
  Company Number: US-009507513-1511USA013248

PATIENT
  Sex: Male

DRUGS (4)
  1. MEKINIST [Suspect]
     Active Substance: TRAMETINIB DIMETHYL SULFOXIDE
     Indication: METASTATIC MALIGNANT MELANOMA
  2. KEYTRUDA [Suspect]
     Active Substance: PEMBROLIZUMAB
     Indication: METASTATIC MALIGNANT MELANOMA
     Dosage: UNSPECIFIED DOSE, EVERY 3 WEEKS
     Route: 042
  3. ADCIRCA [Concomitant]
     Active Substance: TADALAFIL
  4. TAFINLAR [Suspect]
     Active Substance: DABRAFENIB MESYLATE
     Indication: METASTATIC MALIGNANT MELANOMA

REACTIONS (5)
  - Hallucination [Unknown]
  - Chills [Unknown]
  - Pyrexia [Unknown]
  - Tremor [Unknown]
  - Malignant neoplasm progression [Fatal]
